FAERS Safety Report 9491891 (Version 1)
Quarter: 2013Q3

REPORT INFORMATION
  Report Type: Spontaneous
  Country: ES (occurrence: None)
  Receive Date: 20130827
  Receipt Date: 20130827
  Transmission Date: 20140515
  Serious: Yes (Life-Threatening)
  Sender: FDA-Public Use
  Company Number: FK201303429

PATIENT
  Age: 34 Year
  Sex: Female

DRUGS (2)
  1. ACETYLCYSTEINE [Suspect]
     Indication: PRODUCT USED FOR UNKNOWN INDICATION
     Dosage: UNKNOWN,UNKNOWN,UNKNOWN
  2. IBUPROFEN (IBUPROFEN) [Concomitant]

REACTIONS (3)
  - Anaphylactic reaction [None]
  - Angioedema [None]
  - Dysphagia [None]
